FAERS Safety Report 5825716-1 (Version None)
Quarter: 2008Q3

REPORT INFORMATION
  Report Type: 
  Country: None (occurrence: None)
  Receive Date: 20080729
  Receipt Date: 20080717
  Transmission Date: 20090109
  Serious: Yes (Hospitalization)
  Sender: FDA-Public Use
  Company Number: US-JNJFOC-20080606478

PATIENT
  Sex: Male
  Weight: 76.66 kg

DRUGS (11)
  1. REMICADE [Suspect]
     Route: 042
  2. REMICADE [Suspect]
     Route: 042
  3. REMICADE [Suspect]
     Indication: CROHN'S DISEASE
     Route: 042
  4. PENTASA [Concomitant]
     Indication: CROHN'S DISEASE
     Route: 048
  5. TESTOSTERONE [Concomitant]
     Indication: BLOOD TESTOSTERONE DECREASED
     Route: 050
  6. NEXIUM [Concomitant]
     Indication: GASTROOESOPHAGEAL REFLUX DISEASE
  7. ATIVAN [Concomitant]
     Indication: SLEEP DISORDER
  8. ATIVAN [Concomitant]
     Indication: ANXIETY
  9. NEBIVOLOL HCL [Concomitant]
     Indication: HYPERTENSION
  10. LEXAPRO [Concomitant]
     Indication: DEPRESSION
  11. LEXAPRO [Concomitant]
     Indication: ANXIETY

REACTIONS (1)
  - TONGUE NEOPLASM MALIGNANT STAGE UNSPECIFIED [None]
